FAERS Safety Report 11886648 (Version 2)
Quarter: 2016Q1

REPORT INFORMATION
  Report Type: Spontaneous
  Country: US (occurrence: US)
  Receive Date: 20160104
  Receipt Date: 20160121
  Transmission Date: 20160526
  Serious: No
  Sender: FDA-Public Use
  Company Number: US-PFIZER INC-2015329749

PATIENT
  Age: 77 Year
  Sex: Female
  Weight: 59 kg

DRUGS (4)
  1. HYDROCORTISONE. [Concomitant]
     Active Substance: HYDROCORTISONE
     Indication: BACK DISORDER
     Dosage: 1X/DAY
  2. XELJANZ [Suspect]
     Active Substance: TOFACITINIB CITRATE
     Indication: ARTHRITIS
     Dosage: 5 MG, 2X/DAY
     Route: 048
     Dates: start: 20150930
  3. GABAPENTIN. [Concomitant]
     Active Substance: GABAPENTIN
  4. BACLOFEN. [Concomitant]
     Active Substance: BACLOFEN
     Dosage: 10 MG

REACTIONS (3)
  - Skin lesion [Unknown]
  - Drug screen positive [Unknown]
  - Foot deformity [Unknown]

NARRATIVE: CASE EVENT DATE: 201510
